FAERS Safety Report 6342628-8 (Version None)
Quarter: 2009Q3

REPORT INFORMATION
  Report Type: 
  Country: None (occurrence: None)
  Receive Date: 20090908
  Receipt Date: 20090902
  Transmission Date: 20100115
  Serious: Yes (Death, Hospitalization)
  Sender: FDA-Public Use
  Company Number: CZ-CELGENEUS-217-C5013-08031854

PATIENT
  Sex: Male
  Weight: 55 kg

DRUGS (3)
  1. REVLIMID [Suspect]
     Indication: MULTIPLE MYELOMA
     Route: 048
     Dates: start: 20080225, end: 20080316
  2. MELPHALAN HYDROCHLORIDE [Suspect]
     Indication: MULTIPLE MYELOMA
     Route: 065
     Dates: start: 20080225, end: 20080228
  3. PREDNISONE TAB [Suspect]
     Indication: MULTIPLE MYELOMA
     Route: 065
     Dates: start: 20080225, end: 20080228

REACTIONS (3)
  - CLOSTRIDIUM COLITIS [None]
  - DIARRHOEA [None]
  - PSEUDOMEMBRANOUS COLITIS [None]
